FAERS Safety Report 5757289-6 (Version None)
Quarter: 2008Q2

REPORT INFORMATION
  Report Type: 
  Country: None (occurrence: None)
  Receive Date: 20080603
  Receipt Date: 20080529
  Transmission Date: 20081010
  Serious: Yes (Other)
  Sender: FDA-Public Use
  Company Number: BR-ROCHE-556524

PATIENT
  Sex: Female

DRUGS (2)
  1. ROACUTAN [Suspect]
     Indication: ACNE
     Route: 048
     Dates: start: 19990101, end: 20010101
  2. CONTRACEPTIVE [Concomitant]
     Indication: CONTRACEPTION

REACTIONS (8)
  - ALOPECIA [None]
  - BLOOD VISCOSITY INCREASED [None]
  - CARDIAC MURMUR [None]
  - FLUID RETENTION [None]
  - JOINT DISLOCATION [None]
  - MYALGIA [None]
  - PANIC ATTACK [None]
  - VITREOUS FLOATERS [None]
